FAERS Safety Report 5344221-2 (Version None)
Quarter: 2007Q2

REPORT INFORMATION
  Report Type: 
  Country: None (occurrence: None)
  Receive Date: 20070531
  Receipt Date: 20070531
  Transmission Date: 20071010
  Serious: No
  Sender: FDA-Public Use
  Company Number: None

PATIENT
  Age: 66 Year
  Sex: Male

DRUGS (1)
  1. FLAGYL [Suspect]
     Dosage: 500 MG IV

REACTIONS (1)
  - HALLUCINATION, VISUAL [None]
